FAERS Safety Report 7659634-3 (Version None)
Quarter: 2011Q3

REPORT INFORMATION
  Report Type: 
  Country: None (occurrence: None)
  Receive Date: 20110805
  Receipt Date: 20110725
  Transmission Date: 20111222
  Serious: Yes (Hospitalization, Other)
  Sender: FDA-Public Use
  Company Number: US-MERCK-1012USA03782

PATIENT
  Age: 51 Year
  Sex: Female
  Weight: 73 kg

DRUGS (9)
  1. FOSAMAX [Suspect]
     Route: 048
     Dates: start: 20001029
  2. OS-CAL [Concomitant]
     Route: 065
  3. FOSAMAX [Suspect]
     Route: 048
     Dates: start: 19980428, end: 19980721
  4. ALENDRONATE SODIUM [Suspect]
     Route: 048
     Dates: start: 20080803, end: 20091102
  5. FOSAMAX [Suspect]
     Indication: OSTEOPOROSIS
     Route: 048
     Dates: start: 20011219, end: 20100101
  6. CALCIUM (UNSPECIFIED) AND VITAMIN D (UNSPECIFIED) [Concomitant]
     Route: 048
  7. PREMARIN [Concomitant]
     Route: 065
  8. FOSAMAX [Suspect]
     Route: 048
     Dates: start: 20001001, end: 20100301
  9. VITAMINS (UNSPECIFIED) [Concomitant]
     Route: 065

REACTIONS (94)
  - APPENDIX DISORDER [None]
  - BONE PAIN [None]
  - CALCULUS URETERIC [None]
  - CONTUSION [None]
  - CHEST PAIN [None]
  - HYPERTENSION [None]
  - MYALGIA [None]
  - RECTAL FISSURE [None]
  - FUNGAL INFECTION [None]
  - URINARY TRACT INFECTION [None]
  - WOUND [None]
  - PAIN [None]
  - MUSCLE STRAIN [None]
  - BACK PAIN [None]
  - GINGIVAL DISORDER [None]
  - BONE DISORDER [None]
  - MUSCLE SPASMS [None]
  - COUGH [None]
  - NASOPHARYNGITIS [None]
  - CELLULITIS [None]
  - OEDEMA PERIPHERAL [None]
  - FLANK PAIN [None]
  - FAECES HARD [None]
  - JOINT INJURY [None]
  - GASTROOESOPHAGEAL REFLUX DISEASE [None]
  - CARPAL TUNNEL SYNDROME [None]
  - ABDOMINAL DISTENSION [None]
  - PELVIC MASS [None]
  - HAEMORRHOIDS [None]
  - ADVERSE EVENT [None]
  - FATIGUE [None]
  - FALL [None]
  - HEADACHE [None]
  - HYPOAESTHESIA [None]
  - NAIL DISORDER [None]
  - SKIN LESION [None]
  - LEUKOCYTOSIS [None]
  - INTERVERTEBRAL DISC DEGENERATION [None]
  - CARDIAC DISORDER [None]
  - GASTRITIS [None]
  - PATELLOFEMORAL PAIN SYNDROME [None]
  - INSOMNIA [None]
  - HOT FLUSH [None]
  - UPPER RESPIRATORY TRACT INFECTION [None]
  - LOWER RESPIRATORY TRACT INFECTION [None]
  - ARTHRITIS [None]
  - EXCORIATION [None]
  - CONSTIPATION [None]
  - PYREXIA [None]
  - NECK PAIN [None]
  - PHARYNGITIS [None]
  - EPICONDYLITIS [None]
  - DYSPNOEA EXERTIONAL [None]
  - DEPRESSION [None]
  - FEMUR FRACTURE [None]
  - MUSCULOSKELETAL PAIN [None]
  - SYNOVIAL CYST [None]
  - OSTEOPENIA [None]
  - SINUSITIS [None]
  - TEMPOROMANDIBULAR JOINT SYNDROME [None]
  - SKIN PAPILLOMA [None]
  - HEAD INJURY [None]
  - EAR PAIN [None]
  - DYSLIPIDAEMIA [None]
  - NEPHROLITHIASIS [None]
  - OVERDOSE [None]
  - ABDOMINAL PAIN LOWER [None]
  - ARTHRALGIA [None]
  - HYDRONEPHROSIS [None]
  - SLEEP APNOEA SYNDROME [None]
  - SINUS DISORDER [None]
  - RHINITIS [None]
  - WEIGHT INCREASED [None]
  - VARICOSE VEIN [None]
  - ACROCHORDON [None]
  - MEDICAL DEVICE COMPLICATION [None]
  - LOWER EXTREMITY MASS [None]
  - GASTROENTERITIS VIRAL [None]
  - CYSTITIS [None]
  - CYST [None]
  - AORTIC STENOSIS [None]
  - LIGAMENT SPRAIN [None]
  - JOINT LAXITY [None]
  - HYPOTHYROIDISM [None]
  - OSTEOARTHRITIS [None]
  - NASAL CONGESTION [None]
  - ROTATOR CUFF SYNDROME [None]
  - RASH [None]
  - STRESS [None]
  - PAIN IN EXTREMITY [None]
  - MENISCUS LESION [None]
  - DIZZINESS [None]
  - BRONCHITIS [None]
  - APPENDICITIS [None]
